FAERS Safety Report 10256619 (Version 1)
Quarter: 2014Q2

REPORT INFORMATION
  Report Type: Spontaneous
  Country: US (occurrence: US)
  Receive Date: 20140624
  Receipt Date: 20140624
  Transmission Date: 20141212
  Serious: No
  Sender: FDA-Public Use
  Company Number: US-009507513-1406USA007248

PATIENT
  Sex: Female

DRUGS (24)
  1. CLARITIN [Suspect]
     Indication: RHINORRHOEA
     Dosage: 10 MG, BID
     Route: 048
  2. CLARITIN [Suspect]
     Indication: LACRIMATION INCREASED
  3. XANAX [Concomitant]
     Indication: NERVOUSNESS
     Dosage: 0.25 MG, QAM
  4. ZOLPIDEM TARTRATE [Concomitant]
     Indication: SLEEP DISORDER THERAPY
     Dosage: 10 MG, HS
  5. FEXOFENADINE HYDROCHLORIDE [Concomitant]
     Indication: ANTIALLERGIC THERAPY
     Dosage: 180 MG, QAM
  6. PREMARIN [Concomitant]
     Indication: PRODUCT USED FOR UNKNOWN INDICATION
     Dosage: UNK, QW
  7. CLOBETASOL PROPIONATE [Concomitant]
     Indication: PRODUCT USED FOR UNKNOWN INDICATION
     Dosage: UNK, UNKNOWN
  8. HYDROCOTISONE FOUGERA [Concomitant]
     Indication: PRODUCT USED FOR UNKNOWN INDICATION
  9. HYDROCHLOROTHIAZIDE [Concomitant]
     Indication: BLOOD PRESSURE
     Dosage: 25 MG, QAM
  10. SYNTHROID [Concomitant]
     Indication: THYROID DISORDER
     Dosage: 0.1 MG, QAM
  11. CELEBREX [Concomitant]
     Indication: ARTHRITIS
     Dosage: 200 MG, QAM
  12. CRESTOR [Concomitant]
     Indication: BLOOD CHOLESTEROL
     Dosage: 5 MG, QAM
  13. PEPCID [Concomitant]
     Indication: GASTRIC DISORDER
     Dosage: 20 MG, QAM
  14. SYSTANE [Concomitant]
     Indication: PRODUCT USED FOR UNKNOWN INDICATION
     Dosage: 1.5 MG, QAM
  15. DURAGESIC [Concomitant]
     Indication: PRODUCT USED FOR UNKNOWN INDICATION
     Dosage: 125 MG, QOD
  16. HYDROMORPHONE [Concomitant]
     Indication: PAIN
     Dosage: 8 MG, QID
  17. TIZANIDINE HYDROCHLORIDE [Concomitant]
     Indication: NERVE INJURY
     Dosage: 4 MG, TID
  18. ASPIRIN [Concomitant]
     Indication: PRODUCT USED FOR UNKNOWN INDICATION
     Dosage: UNK, UNKNOWN
  19. OS-CAL + D [Concomitant]
     Indication: PRODUCT USED FOR UNKNOWN INDICATION
     Dosage: UNK, BID
  20. MAXIVISION EYE FORMULA [Concomitant]
     Indication: PRODUCT USED FOR UNKNOWN INDICATION
     Dosage: 2 DF QAM, 1 DF QPM
  21. SENNA [Concomitant]
     Indication: FUNCTIONAL GASTROINTESTINAL DISORDER
     Dosage: UNK, UNKNOWN
  22. LISINOPRIL [Concomitant]
     Indication: BLOOD PRESSURE
     Dosage: 20 MG, QAM
  23. CATAPRES [Concomitant]
     Indication: HYPERTENSION
     Dosage: UNK, PRN
  24. GABAPENTIN [Concomitant]
     Indication: PRODUCT USED FOR UNKNOWN INDICATION
     Dosage: 300 MG, QPM

REACTIONS (4)
  - Peripheral swelling [Recovered/Resolved]
  - Pain in extremity [Recovered/Resolved]
  - Overdose [Unknown]
  - Drug ineffective [Unknown]
